FAERS Safety Report 6195963-0 (Version None)
Quarter: 2009Q2

REPORT INFORMATION
  Report Type: 
  Country: None (occurrence: None)
  Receive Date: 20090520
  Receipt Date: 20090513
  Transmission Date: 20091009
  Serious: Yes (Other)
  Sender: FDA-Public Use
  Company Number: PHHY2009AU18647

PATIENT
  Sex: Female

DRUGS (5)
  1. ZOMETA [Suspect]
  2. BEVACIZUMAB [Concomitant]
  3. PACLITAXEL [Concomitant]
  4. TAXANES [Interacting]
  5. VASCULAR ENDOTHELIAL GROWTH FACTOR [Interacting]

REACTIONS (2)
  - DRUG INTERACTION [None]
  - OSTEONECROSIS [None]
